FAERS Safety Report 19210002 (Version 2)
Quarter: 2021Q2

REPORT INFORMATION
  Report Type: Report from Study
  Country: BE (occurrence: BE)
  Receive Date: 20210504
  Receipt Date: 20210608
  Transmission Date: 20210717
  Serious: Yes (Death, Hospitalization, Other)
  Sender: FDA-Public Use
  Company Number: BE-TEVA-2020-BE-1860624

PATIENT
  Age: 59 Year
  Sex: Male

DRUGS (12)
  1. XARELTO [Concomitant]
     Active Substance: RIVAROXABAN
     Indication: PULMONARY EMBOLISM
     Dosage: 20 MILLIGRAM DAILY;
     Route: 048
     Dates: start: 20200612
  2. 5?FU [Suspect]
     Active Substance: FLUOROURACIL
     Indication: PROPHYLAXIS AGAINST GASTROINTESTINAL ULCER
     Dosage: 2400 MG/M2 DAILY;
     Dates: start: 20200612, end: 20200612
  3. PANTOMED [Concomitant]
     Indication: PROPHYLAXIS AGAINST GASTROINTESTINAL ULCER
     Dosage: 40 MILLIGRAM DAILY;
     Route: 048
     Dates: start: 201912
  4. VOLTAREN [Concomitant]
     Active Substance: DICLOFENAC SODIUM
     Indication: ABDOMINAL PAIN
     Dosage: 150 MILLIGRAM DAILY;
     Route: 048
     Dates: start: 20200603
  5. DUROGESIC [Concomitant]
     Active Substance: FENTANYL
     Indication: ABDOMINAL PAIN
     Dosage: 150  DAILY; UG/H (1 IN 48 HR)
     Route: 062
     Dates: start: 20200525
  6. TRAZODON [Concomitant]
     Active Substance: TRAZODONE HYDROCHLORIDE
     Indication: INSOMNIA
     Dosage: 100 MILLIGRAM DAILY;
     Route: 048
     Dates: start: 20200616
  7. LEUCOVORIN. [Suspect]
     Active Substance: LEUCOVORIN
     Indication: DUCTAL ADENOCARCINOMA OF PANCREAS
     Dosage: 200 MG/M2 DAILY;
     Dates: start: 20200612, end: 20200612
  8. CREON [Concomitant]
     Active Substance: PANCRELIPASE AMYLASE\PANCRELIPASE LIPASE\PANCRELIPASE PROTEASE
     Indication: STEATORRHOEA
     Dosage: 300 MILLIGRAM DAILY; AS REQUIRED
     Route: 048
     Dates: start: 20200612
  9. FUROSEMIDE. [Concomitant]
     Active Substance: FUROSEMIDE
     Indication: OEDEMA PERIPHERAL
     Dosage: 40 MILLIGRAM DAILY;
     Route: 048
     Dates: start: 20200709
  10. OXYNORM [Concomitant]
     Active Substance: OXYCODONE HYDROCHLORIDE
     Indication: ABDOMINAL PAIN
     Dosage: 40 MILLIGRAM DAILY; (MAX 6 PER DAY)
     Route: 048
     Dates: start: 20200525
  11. ONIVYDE [Suspect]
     Active Substance: IRINOTECAN HYDROCHLORIDE
     Indication: PROPHYLAXIS AGAINST GASTROINTESTINAL ULCER
     Dosage: 70 MG/M2 DAILY;
     Route: 065
     Dates: start: 20200612, end: 20200612
  12. OMNIBIONTA [Concomitant]
     Active Substance: VITAMINS
     Indication: EVIDENCE BASED TREATMENT
     Dosage: 1 DOSAGE FORMS DAILY; 1 CAPSULE (1 IN 1 D)
     Route: 048
     Dates: start: 202002

REACTIONS (3)
  - Diarrhoea [Recovered/Resolved]
  - Death [Fatal]
  - General physical health deterioration [Unknown]

NARRATIVE: CASE EVENT DATE: 20200618
